APPROVED DRUG PRODUCT: SHADE UVAGUARD
Active Ingredient: AVOBENZONE; OCTINOXATE; OXYBENZONE
Strength: 3%;7.5%;3%
Dosage Form/Route: LOTION;TOPICAL
Application: N020045 | Product #001
Applicant: BAYER HEALTHCARE LLC
Approved: Dec 7, 1992 | RLD: Yes | RS: No | Type: DISCN